FAERS Safety Report 5309669-0 (Version None)
Quarter: 2007Q2

REPORT INFORMATION
  Report Type: 
  Country: None (occurrence: None)
  Receive Date: 20070427
  Receipt Date: 20061006
  Transmission Date: 20071010
  Serious: No
  Sender: FDA-Public Use
  Company Number: US-GLAXOSMITHKLINE-A0622753A

PATIENT
  Age: 79 Year

DRUGS (1)
  1. DEXEDRINE [Suspect]
     Indication: NARCOLEPSY
     Dosage: 5MG VARIABLE DOSE
     Route: 048
     Dates: start: 20060601

REACTIONS (2)
  - DRUG INEFFECTIVE [None]
  - PHARMACEUTICAL PRODUCT COMPLAINT [None]
